FAERS Safety Report 14776690 (Version 1)
Quarter: 2018Q2

REPORT INFORMATION
  Report Type: Spontaneous
  Country: FR (occurrence: FR)
  Receive Date: 20180419
  Receipt Date: 20180419
  Transmission Date: 20180711
  Serious: Yes (Other)
  Sender: FDA-Public Use
  Company Number: FR-MERCK KGAA-2045995

PATIENT
  Age: 56 Year
  Sex: Female

DRUGS (3)
  1. NOVOTHYROX [Suspect]
     Active Substance: LEVOTHYROXINE SODIUM
     Indication: POST PROCEDURAL HYPOTHYROIDISM
     Dates: start: 201704
  2. NOVOTHYROX [Suspect]
     Active Substance: LEVOTHYROXINE SODIUM
  3. L-THYROXIN [Concomitant]
     Active Substance: LEVOTHYROXINE SODIUM

REACTIONS (21)
  - Depression [Recovering/Resolving]
  - Tendonitis [Recovering/Resolving]
  - Tachycardia [Recovering/Resolving]
  - Blood thyroid stimulating hormone decreased [None]
  - Hot flush [Recovering/Resolving]
  - Crying [Recovering/Resolving]
  - Constipation [Recovering/Resolving]
  - Mood swings [Recovering/Resolving]
  - Fatigue [Recovering/Resolving]
  - Myalgia [Recovering/Resolving]
  - Loss of libido [Recovering/Resolving]
  - Arthralgia [Recovering/Resolving]
  - Hyperthyroidism [Recovering/Resolving]
  - Dyspepsia [Recovering/Resolving]
  - Pain [Recovering/Resolving]
  - Insomnia [Recovering/Resolving]
  - Suicidal ideation [Recovering/Resolving]
  - Weight increased [Recovering/Resolving]
  - Decreased activity [Recovering/Resolving]
  - Spinal pain [Recovering/Resolving]
  - Muscle spasms [Recovering/Resolving]

NARRATIVE: CASE EVENT DATE: 20171018
